FAERS Safety Report 5961578-X (Version None)
Quarter: 2008Q4

REPORT INFORMATION
  Report Type: 
  Country: None (occurrence: None)
  Receive Date: 20081121
  Receipt Date: 20081117
  Transmission Date: 20090506
  Serious: Yes (Death)
  Sender: FDA-Public Use
  Company Number: B0547112A

PATIENT
  Age: 16 Year
  Sex: Female

DRUGS (2)
  1. VENTOLIN [Suspect]
     Indication: ASTHMA
     Route: 065
  2. SALAMOL [Suspect]
     Indication: ASTHMA
     Route: 065

REACTIONS (1)
  - DEATH [None]
